FAERS Safety Report 7771241-0 (Version None)
Quarter: 2011Q3

REPORT INFORMATION
  Report Type: 
  Country: None (occurrence: None)
  Receive Date: 20110922
  Receipt Date: 20110511
  Transmission Date: 20111222
  Serious: No
  Sender: FDA-Public Use
  Company Number: US-ASTRAZENECA-2011SE28108

PATIENT
  Age: 43 Year
  Sex: Female
  Weight: 66.7 kg

DRUGS (5)
  1. SEROQUEL XR [Suspect]
     Route: 048
     Dates: start: 20110301, end: 20110501
  2. SEROQUEL XR [Suspect]
     Indication: ANXIETY
     Route: 048
     Dates: start: 20100101, end: 20110301
  3. SEROQUEL XR [Suspect]
     Route: 048
     Dates: start: 20110301, end: 20110501
  4. ESTRADIOL [Concomitant]
  5. SEROQUEL XR [Suspect]
     Indication: PANIC ATTACK
     Route: 048
     Dates: start: 20100101, end: 20110301

REACTIONS (10)
  - WEIGHT INCREASED [None]
  - INSOMNIA [None]
  - VOMITING [None]
  - COLD SWEAT [None]
  - DRUG DOSE OMISSION [None]
  - NAUSEA [None]
  - ASTHENIA [None]
  - WEIGHT DECREASED [None]
  - INFLUENZA LIKE ILLNESS [None]
  - OFF LABEL USE [None]
